FAERS Safety Report 17391633 (Version 1)
Quarter: 2020Q1

REPORT INFORMATION
  Report Type: Report from Study
  Country: None (occurrence: US)
  Receive Date: 20200207
  Receipt Date: 20200207
  Transmission Date: 20200409
  Serious: Yes (Hospitalization)
  Sender: FDA-Public Use
  Company Number: US-ABBVIE-20K-163-3263632-00

PATIENT
  Age: 43 Year
  Sex: Female

DRUGS (1)
  1. HUMIRA [Suspect]
     Active Substance: ADALIMUMAB
     Indication: CROHN^S DISEASE
     Dosage: DAY 1
     Route: 058
     Dates: start: 20200122, end: 20200122

REACTIONS (10)
  - Weight decreased [Unknown]
  - Loss of personal independence in daily activities [Unknown]
  - Rectal haemorrhage [Unknown]
  - Haematochezia [Recovering/Resolving]
  - Dizziness [Unknown]
  - Insomnia [Unknown]
  - Constipation [Recovering/Resolving]
  - Decreased appetite [Unknown]
  - Anaemia [Unknown]
  - Abdominal pain [Recovering/Resolving]

NARRATIVE: CASE EVENT DATE: 202001
